FAERS Safety Report 20762487 (Version 1)
Quarter: 2022Q2

REPORT INFORMATION
  Report Type: Report from Study
  Country: US (occurrence: US)
  Receive Date: 20220428
  Receipt Date: 20220428
  Transmission Date: 20220721
  Serious: Yes (Hospitalization)
  Sender: FDA-Public Use
  Company Number: US-NOVARTISPH-NVSC2021US251786

PATIENT
  Age: 69 Year
  Sex: Male
  Weight: 79.7 kg

DRUGS (5)
  1. ILARIS [Suspect]
     Active Substance: CANAKINUMAB
     Indication: Non-small cell lung cancer
     Dosage: UNK
     Route: 058
     Dates: start: 20210913
  2. ILARIS [Suspect]
     Active Substance: CANAKINUMAB
     Dosage: LOADING DOSE (LD)
     Route: 058
     Dates: start: 20211011, end: 20211025
  3. ILARIS [Suspect]
     Active Substance: CANAKINUMAB
     Dosage: UNK
     Route: 058
     Dates: start: 20211129, end: 20220126
  4. TAXOL [Suspect]
     Active Substance: PACLITAXEL
     Indication: Non-small cell lung cancer
     Dosage: UNK
     Route: 065
     Dates: start: 20210913
  5. TAXOL [Suspect]
     Active Substance: PACLITAXEL
     Dosage: LOADING DOSE (LD)
     Route: 065
     Dates: start: 20211011, end: 20211018

REACTIONS (1)
  - Pneumonia [Recovered/Resolved]

NARRATIVE: CASE EVENT DATE: 20211029
